FAERS Safety Report 5867427-2 (Version None)
Quarter: 2008Q3

REPORT INFORMATION
  Report Type: 
  Country: None (occurrence: None)
  Receive Date: 20080902
  Receipt Date: 20080902
  Transmission Date: 20090109
  Serious: Yes (Hospitalization)
  Sender: FDA-Public Use
  Company Number: PHEH1996US01513

PATIENT
  Sex: Male
  Weight: 110 kg

DRUGS (5)
  1. NEORAL [Suspect]
     Route: 048
     Dates: start: 19950630, end: 19960624
  2. PREDNISONE TAB [Concomitant]
  3. PERCOCET [Concomitant]
  4. GANCYCLOVIR (GANCICLOVIR) [Concomitant]
  5. SEPTRA [Concomitant]

REACTIONS (6)
  - ABSCESS [None]
  - CHILLS [None]
  - NAUSEA [None]
  - PAIN [None]
  - PYREXIA [None]
  - URINARY RETENTION [None]
